FAERS Safety Report 8624306-5 (Version None)
Quarter: 2012Q3

REPORT INFORMATION
  Report Type: 
  Country: None (occurrence: None)
  Receive Date: 20120827
  Receipt Date: 20120821
  Transmission Date: 20120928
  Serious: Yes (Life-Threatening, Hospitalization)
  Sender: FDA-Public Use
  Company Number: US-ASTRAZENECA-2012SE60535

PATIENT
  Age: 36 Year
  Sex: Female
  Weight: 65.3 kg

DRUGS (7)
  1. COMBIVENT [Concomitant]
     Dosage: 2 PUFFS, BID
  2. PRILOSEC [Suspect]
     Route: 048
  3. CLONAZEPAM [Concomitant]
  4. SEROQUEL [Suspect]
     Indication: BIPOLAR DISORDER
     Route: 048
  5. SYMBICORT [Suspect]
     Dosage: 160/4.5 MCG, 2 PUFFS, BID
     Route: 055
  6. SERREX IRON [Concomitant]
  7. DILTIAZEM [Concomitant]
     Indication: CARDIAC DISORDER

REACTIONS (11)
  - PNEUMONIA [None]
  - ABDOMINAL DISTENSION [None]
  - GALLBLADDER ENLARGEMENT [None]
  - CHRONIC OBSTRUCTIVE PULMONARY DISEASE [None]
  - SEPSIS [None]
  - VOMITING [None]
  - COUGH [None]
  - PYREXIA [None]
  - SOMNOLENCE [None]
  - LOSS OF CONSCIOUSNESS [None]
  - INCREASED UPPER AIRWAY SECRETION [None]
